FAERS Safety Report 9288367 (Version 2)
Quarter: 2013Q3

REPORT INFORMATION
  Report Type: Spontaneous
  Country: IT (occurrence: IT)
  Receive Date: 20130514
  Receipt Date: 20130701
  Transmission Date: 20140515
  Serious: Yes (Other)
  Sender: FDA-Public Use
  Company Number: IT-PFIZER INC-2013142234

PATIENT
  Age: 59 Year
  Sex: Female

DRUGS (1)
  1. TOTALIP [Suspect]
     Indication: HYPERCHOLESTEROLAEMIA
     Dosage: 40 MG, DAILY
     Route: 048
     Dates: start: 20120930, end: 20121110

REACTIONS (4)
  - Amnesia [Recovering/Resolving]
  - Pain in extremity [Recovering/Resolving]
  - Vertigo [Recovering/Resolving]
  - Pruritus generalised [Recovering/Resolving]
